FAERS Safety Report 21972207 (Version 4)
Quarter: 2023Q1

REPORT INFORMATION
  Report Type: Spontaneous
  Country: MX (occurrence: None)
  Receive Date: 20230209
  Receipt Date: 20230324
  Transmission Date: 20230417
  Serious: Yes (Other)
  Sender: FDA-Public Use
  Company Number: 2023A030857

PATIENT
  Age: 1011 Month
  Sex: Female
  Weight: 66.8 kg

DRUGS (2)
  1. SYMBICORT [Suspect]
     Active Substance: BUDESONIDE\FORMOTEROL FUMARATE DIHYDRATE
     Indication: Asthma
     Route: 055
     Dates: start: 2020
  2. ALBUTEROL [Concomitant]
     Active Substance: ALBUTEROL
     Indication: Breath sounds abnormal

REACTIONS (6)
  - Asphyxia [Recovered/Resolved]
  - Feeling of despair [Recovered/Resolved]
  - Product administration error [Unknown]
  - Device use issue [Unknown]
  - Device delivery system issue [Unknown]
  - Drug ineffective [Recovered/Resolved]

NARRATIVE: CASE EVENT DATE: 20230101
